FAERS Safety Report 10306511 (Version 1)
Quarter: 2014Q3

REPORT INFORMATION
  Report Type: Spontaneous
  Country: US (occurrence: US)
  Receive Date: 20140715
  Receipt Date: 20140715
  Transmission Date: 20150326
  Serious: Yes (Hospitalization, Other)
  Sender: FDA-Public Use
  Company Number: US-TEVA-494484USA

PATIENT
  Age: 56 Year
  Sex: Female

DRUGS (1)
  1. METHOTREXATE [Suspect]
     Active Substance: METHOTREXATE
     Indication: RHEUMATOID ARTHRITIS
     Route: 065

REACTIONS (6)
  - Metabolic acidosis [Unknown]
  - Renal failure acute [Unknown]
  - Pancytopenia [Unknown]
  - Toxicity to various agents [Unknown]
  - Tachycardia [Unknown]
  - Hepatic enzyme increased [Unknown]
